FAERS Safety Report 5891394-9 (Version None)
Quarter: 2008Q3

REPORT INFORMATION
  Report Type: 
  Country: None (occurrence: None)
  Receive Date: 20080922
  Receipt Date: 20080915
  Transmission Date: 20090109
  Serious: Yes (Other)
  Sender: FDA-Public Use
  Company Number: US-CELGENEUS-163-20785-08090134

PATIENT
  Sex: Female

DRUGS (1)
  1. THALOMID [Suspect]
     Indication: MULTIPLE MYELOMA
     Route: 048
     Dates: start: 20080318

REACTIONS (5)
  - ANGIOPATHY [None]
  - INFECTION [None]
  - SKIN ULCER [None]
  - UNEVALUABLE EVENT [None]
  - VASCULITIS [None]
